FAERS Safety Report 18767000 (Version 1)
Quarter: 2021Q1

REPORT INFORMATION
  Report Type: Other
  Country: DE (occurrence: DE)
  Receive Date: 20210121
  Receipt Date: 20210121
  Transmission Date: 20210419
  Serious: No
  Sender: FDA-Public Use
  Company Number: DE-ROCHE-2754335

PATIENT
  Age: 34 Year
  Sex: Female
  Weight: 57 kg

DRUGS (11)
  1. INTERFERON BETA?1A [Concomitant]
     Active Substance: INTERFERON BETA-1A
     Dates: start: 201208, end: 201605
  2. GLATIRAMERACETAT [Concomitant]
     Dates: start: 201110, end: 201208
  3. PREDNISOLUT [Concomitant]
     Active Substance: PREDNISOLONE
     Route: 042
     Dates: start: 20180719, end: 20180719
  4. PREDNISOLUT [Concomitant]
     Active Substance: PREDNISOLONE
     Route: 048
     Dates: start: 20180705, end: 20180705
  5. DIMETHYL FUMARATE [Concomitant]
     Active Substance: DIMETHYL FUMARATE
     Dates: start: 201607, end: 201711
  6. OCRELIZUMAB. [Suspect]
     Active Substance: OCRELIZUMAB
     Indication: MULTIPLE SCLEROSIS
     Route: 042
     Dates: start: 20190116
  7. OCRELIZUMAB. [Suspect]
     Active Substance: OCRELIZUMAB
     Indication: RELAPSING MULTIPLE SCLEROSIS
     Route: 042
     Dates: start: 20180705, end: 20180719
  8. PREDNISOLUT [Concomitant]
     Active Substance: PREDNISOLONE
     Indication: PROPHYLAXIS
     Route: 042
     Dates: start: 20190116, end: 20190116
  9. RANITIDINE. [Concomitant]
     Active Substance: RANITIDINE
     Indication: PROPHYLAXIS
     Route: 048
     Dates: start: 201806
  10. AERIUS [Concomitant]
     Indication: PROPHYLAXIS
     Route: 048
     Dates: start: 201806
  11. DEKRISTOL [Concomitant]
     Active Substance: CHOLECALCIFEROL
     Indication: PROPHYLAXIS
     Route: 048
     Dates: start: 2013

REACTIONS (1)
  - COVID-19 [Unknown]

NARRATIVE: CASE EVENT DATE: 202012
